FAERS Safety Report 8267885-2 (Version None)
Quarter: 2012Q2

REPORT INFORMATION
  Report Type: 
  Country: None (occurrence: None)
  Receive Date: 20120409
  Receipt Date: 20120329
  Transmission Date: 20120825
  Serious: Yes (Death, Hospitalization)
  Sender: FDA-Public Use
  Company Number: FR-BRISTOL-MYERS SQUIBB COMPANY-16502296

PATIENT
  Age: 62 Year
  Sex: Male

DRUGS (10)
  1. ATORVASTATIN [Concomitant]
  2. GLUCOPHAGE [Suspect]
     Dates: end: 20120225
  3. COLCHICINE [Suspect]
     Indication: GOUT
     Dosage: FILM COATED TAB
     Dates: start: 20120223, end: 20120225
  4. ASPIRIN [Concomitant]
  5. INSPRA [Concomitant]
     Dosage: 1DF:25 UNIT NOS
  6. TRANDOLAPRIL [Concomitant]
  7. REPAGLINIDE [Concomitant]
  8. LANTUS [Concomitant]
  9. LASIX [Concomitant]
  10. BISOPROLOL FUMARATE [Concomitant]

REACTIONS (4)
  - HYPOTENSION [None]
  - DEHYDRATION [None]
  - METABOLIC ACIDOSIS [None]
  - RENAL FAILURE ACUTE [None]
